FAERS Safety Report 20470202 (Version 2)
Quarter: 2022Q4

REPORT INFORMATION
  Report Type: Spontaneous
  Country: US (occurrence: US)
  Receive Date: 20220214
  Receipt Date: 20221101
  Transmission Date: 20230112
  Serious: Yes (Death, Hospitalization, Other)
  Sender: FDA-Public Use
  Company Number: US-PFIZER INC-202200256128

PATIENT
  Age: 48 Year
  Sex: Male

DRUGS (13)
  1. AMLODIPINE BESYLATE [Suspect]
     Active Substance: AMLODIPINE BESYLATE
     Dosage: UNK (INGESTION)
     Route: 048
  2. NIFEDIPINE [Suspect]
     Active Substance: NIFEDIPINE
     Dosage: UNK (INGESTION)
     Route: 048
  3. GABAPENTIN [Suspect]
     Active Substance: GABAPENTIN
     Dosage: UNK (INGESTION)
     Route: 048
  4. BUMETANIDE [Suspect]
     Active Substance: BUMETANIDE
     Dosage: UNK (INGESTION)
     Route: 048
  5. SERTRALINE HYDROCHLORIDE [Suspect]
     Active Substance: SERTRALINE HYDROCHLORIDE
     Dosage: UNK (INGESTION)
     Route: 048
  6. LEVOTHYROXINE SODIUM [Suspect]
     Active Substance: LEVOTHYROXINE SODIUM
     Dosage: UNK (INGESTION)
     Route: 048
  7. ATORVASTATIN CALCIUM [Suspect]
     Active Substance: ATORVASTATIN CALCIUM
     Dosage: UNK (INGESTION)
     Route: 048
  8. CARVEDILOL [Suspect]
     Active Substance: CARVEDILOL
     Dosage: UNK (INGESTION)
     Route: 048
  9. LISINOPRIL [Suspect]
     Active Substance: LISINOPRIL
     Dosage: UNK (INGESTION)
     Route: 048
  10. ACETAMINOPHEN [Suspect]
     Active Substance: ACETAMINOPHEN
     Dosage: UNK (INGESTION)
     Route: 048
  11. HYDRALAZINE [Suspect]
     Active Substance: HYDRALAZINE HYDROCHLORIDE
     Dosage: UNK (INGESTION)
     Route: 048
  12. METOLAZONE [Suspect]
     Active Substance: METOLAZONE
     Dosage: UNK (INGESTION)
     Route: 048
  13. HYDROCODONE [Suspect]
     Active Substance: HYDROCODONE
     Dosage: UNK (INGESTION)
     Route: 048

REACTIONS (2)
  - Completed suicide [Fatal]
  - Off label use [Fatal]

NARRATIVE: CASE EVENT DATE: 20200101
